FAERS Safety Report 5066009-2 (Version None)
Quarter: 2006Q3

REPORT INFORMATION
  Report Type: 
  Country: None (occurrence: None)
  Receive Date: 20060731
  Receipt Date: 20060731
  Transmission Date: 20061208
  Serious: Yes (Other)
  Sender: FDA-Public Use
  Company Number: None

PATIENT
  Age: 42 Year
  Sex: Male
  Weight: 127.9144 kg

DRUGS (2)
  1. OXYCODONE HCL EXTENDED-RELEASE [Suspect]
     Indication: BACK PAIN
     Dosage: 10 MG
  2. HYDROCODINE [Suspect]
     Dosage: 5 MG

REACTIONS (3)
  - MUSCLE SPASMS [None]
  - PRURITUS [None]
  - THERAPEUTIC RESPONSE UNEXPECTED WITH DRUG SUBSTITUTION [None]
